FAERS Safety Report 22243948 (Version 1)
Quarter: 2023Q2

REPORT INFORMATION
  Report Type: Spontaneous
  Country: AU (occurrence: AU)
  Receive Date: 20230424
  Receipt Date: 20230424
  Transmission Date: 20230721
  Serious: Yes (Hospitalization, Other)
  Sender: FDA-Public Use
  Company Number: AU-BRISTOL-MYERS SQUIBB COMPANY-2023-057098

PATIENT
  Age: 69 Year
  Sex: Male
  Weight: 67 kg

DRUGS (6)
  1. APIXABAN [Interacting]
     Active Substance: APIXABAN
     Indication: Product used for unknown indication
  2. ASPIRIN [Interacting]
     Active Substance: ASPIRIN
     Indication: Product used for unknown indication
  3. RETIFANLIMAB [Concomitant]
     Active Substance: RETIFANLIMAB
     Indication: Oropharyngeal cancer
     Route: 042
     Dates: start: 20211123, end: 20211123
  4. ENOBLITUZUMAB [Concomitant]
     Active Substance: ENOBLITUZUMAB
     Indication: Oropharyngeal cancer
     Route: 042
     Dates: start: 20211123, end: 20211123
  5. OMEPRAZOLE [Concomitant]
     Active Substance: OMEPRAZOLE
     Indication: Product used for unknown indication
     Dates: start: 20220102
  6. OXYCODONE [Concomitant]
     Active Substance: OXYCODONE
     Indication: Product used for unknown indication
     Dates: start: 20220101

REACTIONS (3)
  - Labelled drug-drug interaction medication error [Recovered/Resolved]
  - Tumour haemorrhage [Recovered/Resolved]
  - Atrial fibrillation [Recovering/Resolving]

NARRATIVE: CASE EVENT DATE: 20211201
